FAERS Safety Report 26039982 (Version 1)
Quarter: 2025Q4

REPORT INFORMATION
  Report Type: Spontaneous
  Country: US (occurrence: US)
  Receive Date: 20251113
  Receipt Date: 20251113
  Transmission Date: 20260117
  Serious: Yes (Death)
  Sender: ROCHE
  Company Number: US-ROCHE-10000434707

PATIENT
  Age: 81 Year
  Sex: Male

DRUGS (3)
  1. ERIVEDGE [Suspect]
     Active Substance: VISMODEGIB
     Indication: Basal cell carcinoma
     Route: 048
     Dates: start: 202408
  2. PREDNISONE [Concomitant]
     Active Substance: PREDNISONE
  3. ZYTIGA [Concomitant]
     Active Substance: ABIRATERONE ACETATE

REACTIONS (1)
  - Death [Fatal]

NARRATIVE: CASE EVENT DATE: 20251101
